FAERS Safety Report 8985570 (Version 1)
Quarter: 2012Q4

REPORT INFORMATION
  Report Type: 
  Country: BR (occurrence: BR)
  Receive Date: 20121226
  Receipt Date: 20121226
  Transmission Date: 20130627
  Serious: Yes (Other)
  Sender: FDA-Public Use
  Company Number: BR-PFIZER INC-2012321901

PATIENT
  Age: 80 Year
  Sex: Female
  Weight: 71 kg

DRUGS (10)
  1. XALATAN [Suspect]
     Indication: GLAUCOMA
     Dosage: 2 drops each eye 1xday
     Route: 047
     Dates: start: 20081218, end: 201009
  2. XALATAN [Suspect]
     Dosage: UNK
     Route: 047
     Dates: end: 20121213
  3. ALPHAGAN [Suspect]
     Indication: GLAUCOMA
     Dosage: 2 gtts/unk
     Route: 047
     Dates: start: 2010, end: 201211
  4. DEPURAN [Concomitant]
     Indication: PAIN
     Dosage: 6 Gtt, 1x/day
     Dates: start: 2009
  5. DEPURAN [Concomitant]
     Indication: OSTEOPOROSIS
  6. DIUPRES [Concomitant]
     Indication: CARDIOVASCULAR DISORDER NOS
     Dosage: 1 DF 1x/day
     Dates: start: 2007
  7. LIPITOR [Concomitant]
     Indication: CHOLESTEROL HIGH
     Dosage: 20 mg, 1x/day
     Dates: start: 2009
  8. LOSARTAN POTASSIUM [Concomitant]
     Indication: BLOOD PRESSURE INCREASED
     Dosage: 1 tablet,2x/day
     Dates: start: 2007
  9. CALCIDOSE VITAMINE D [Concomitant]
     Indication: OSTEOPOROSIS
     Dosage: 1 DF, 1x/day
     Dates: start: 2005
  10. CYCLOBENZAPRINE HYDROCHLORIDE [Concomitant]
     Indication: MUSCLE DISORDER NOS
     Dosage: 1 DF, UNK
     Dates: start: 2011

REACTIONS (4)
  - Eye disorder [Unknown]
  - Intraocular pressure increased [Unknown]
  - Drug hypersensitivity [Unknown]
  - Ocular discomfort [Unknown]
